FAERS Safety Report 23804182 (Version 1)
Quarter: 2024Q2

REPORT INFORMATION
  Report Type: Other
  Country: IT (occurrence: IT)
  Receive Date: 20240501
  Receipt Date: 20240501
  Transmission Date: 20240716
  Serious: Yes (Other)
  Sender: FDA-Public Use
  Company Number: None

PATIENT
  Age: 73 Year
  Sex: Male

DRUGS (1)
  1. VISIPAQUE [Suspect]
     Active Substance: IODIXANOL
     Indication: Diagnostic procedure
     Dosage: 80 ML, TOTAL
     Route: 065
     Dates: start: 20240417, end: 20240417

REACTIONS (6)
  - Sensation of foreign body [Unknown]
  - Lip oedema [Unknown]
  - Hypotension [Unknown]
  - Tachycardia [Unknown]
  - Dyspnoea at rest [Unknown]
  - Hyperhidrosis [Unknown]

NARRATIVE: CASE EVENT DATE: 20240417
